FAERS Safety Report 14505742 (Version 1)
Quarter: 2018Q1

REPORT INFORMATION
  Report Type: Spontaneous
  Country: US (occurrence: US)
  Receive Date: 20180208
  Receipt Date: 20180208
  Transmission Date: 20180509
  Serious: No
  Sender: FDA-Public Use
  Company Number: US-NEOS THERAPEUTICS, LP-2017NEO00105

PATIENT
  Age: 9 Year
  Sex: Male
  Weight: 49.43 kg

DRUGS (10)
  1. CHILDREN CLARITIN ALLERGY [Concomitant]
     Active Substance: LORATADINE
     Dosage: 5 MG, 1X/DAY IN THE MORNING
     Dates: start: 2017
  2. ADZENYS XR-ODT [Suspect]
     Active Substance: AMPHETAMINE
     Dosage: 12.5 MG, UNK
     Route: 048
     Dates: start: 20171030
  3. ADZENYS XR-ODT [Suspect]
     Active Substance: AMPHETAMINE
     Indication: ATTENTION DEFICIT/HYPERACTIVITY DISORDER
     Dosage: 12.5 MG, 5X/WEEK IN THE MORNING
     Route: 048
     Dates: start: 2017, end: 20171006
  4. MYDAYIS [Suspect]
     Active Substance: AMPHETAMINE ASPARTATE\AMPHETAMINE SULFATE\DEXTROAMPHETAMINE SACCHARATE\DEXTROAMPHETAMINE SULFATE
     Indication: ATTENTION DEFICIT/HYPERACTIVITY DISORDER
     Dosage: 25 MG, 1X/DAY
     Dates: start: 20171013, end: 20171014
  5. ADZENYS XR-ODT [Suspect]
     Active Substance: AMPHETAMINE
     Indication: ATTENTION DEFICIT/HYPERACTIVITY DISORDER
     Dosage: 6.3 MG, 5X/WEEK IN THE MORNING
     Route: 048
     Dates: start: 2017, end: 2017
  6. CLONIDINE PATCH [Suspect]
     Active Substance: CLONIDINE
     Dosage: UNK
     Dates: start: 2017, end: 2017
  7. MELATONIN [Concomitant]
     Active Substance: MELATONIN
     Dosage: 5 ML, 1X/DAY AT NIGHT
     Dates: start: 2012
  8. ADZENYS XR-ODT [Suspect]
     Active Substance: AMPHETAMINE
     Dosage: 12.5 MG, 1X/DAY
     Route: 048
     Dates: start: 2017, end: 2017
  9. ADDERALL [Suspect]
     Active Substance: AMPHETAMINE ASPARTATE\AMPHETAMINE SULFATE\DEXTROAMPHETAMINE SACCHARATE\DEXTROAMPHETAMINE SULFATE
     Indication: ATTENTION DEFICIT/HYPERACTIVITY DISORDER
     Dosage: 10 MG, 1X/DAY AT 2PM
     Dates: start: 2017, end: 20171006
  10. COTEMPLA XR-ODT [Suspect]
     Active Substance: METHYLPHENIDATE
     Indication: ATTENTION DEFICIT/HYPERACTIVITY DISORDER
     Dosage: 8.6 MG, 1X/DAY IN THE MORNING
     Route: 048
     Dates: start: 20171024, end: 20171029

REACTIONS (9)
  - Defiant behaviour [Unknown]
  - Insomnia [Not Recovered/Not Resolved]
  - Abnormal behaviour [Unknown]
  - Belligerence [Unknown]
  - Weight decreased [Unknown]
  - Attention deficit/hyperactivity disorder [Not Recovered/Not Resolved]
  - Therapeutic response shortened [Unknown]
  - Intentional dose omission [Unknown]
  - Drug ineffective [Unknown]

NARRATIVE: CASE EVENT DATE: 2017
